FAERS Safety Report 9871737 (Version 3)
Quarter: 2014Q1

REPORT INFORMATION
  Report Type: Spontaneous
  Country: US (occurrence: US)
  Receive Date: 20140205
  Receipt Date: 20140321
  Transmission Date: 20141002
  Serious: Yes (Other)
  Sender: FDA-Public Use
  Company Number: US-BAXTER-2014BAX002749

PATIENT
  Sex: Female
  Weight: 71.7 kg

DRUGS (4)
  1. GAMMAGARD LIQUID [Suspect]
     Indication: MYASTHENIA GRAVIS
     Route: 042
  2. GAMMAGARD LIQUID [Suspect]
     Indication: OFF LABEL USE
     Route: 042
     Dates: start: 201309, end: 201309
  3. GAMMAGARD LIQUID [Suspect]
     Route: 042
     Dates: start: 20131103, end: 20131103
  4. GAMMAGARD LIQUID [Suspect]
     Route: 042
     Dates: start: 20131109, end: 20131109

REACTIONS (4)
  - Headache [Recovered/Resolved]
  - Dizziness [Recovered/Resolved]
  - Swelling face [Recovered/Resolved]
  - Local swelling [Recovered/Resolved]
